FAERS Safety Report 5252219-8 (Version None)
Quarter: 2007Q1

REPORT INFORMATION
  Report Type: 
  Country: None (occurrence: None)
  Receive Date: 20070227
  Receipt Date: 20070227
  Transmission Date: 20070707
  Serious: Yes (Disabling)
  Sender: FDA-Public Use
  Company Number: None

PATIENT
  Sex: Female
  Weight: 70.3075 kg

DRUGS (1)
  1. MINITRAN [Suspect]
     Indication: FACE LIFT
     Dosage: 0.2MG DAILY ONE ON EACH CHEEK
     Dates: start: 20050401

REACTIONS (3)
  - EXCORIATION [None]
  - SCAR [None]
  - THERMAL BURN [None]
